FAERS Safety Report 24334285 (Version 2)
Quarter: 2024Q3

REPORT INFORMATION
  Report Type: Spontaneous
  Country: RU (occurrence: RU)
  Receive Date: 20240918
  Receipt Date: 20240926
  Transmission Date: 20241016
  Serious: Yes (Hospitalization, Other)
  Sender: FRESENIUS KABI
  Company Number: RU-FreseniusKabi-FK202413805

PATIENT
  Age: 76 Year
  Sex: Female
  Weight: 95 kg

DRUGS (1)
  1. PROPOFOL [Suspect]
     Active Substance: PROPOFOL
     Indication: Anaesthesia
     Dosage: FREQUENCY:  1 TIME?DOSE:  250 MG 1 TIME; INDUCTION OF ANESTHESIA PROPOFOL 1% INTRAVENOUSLY 10 ML, MA
     Route: 042
     Dates: end: 20240823

REACTIONS (3)
  - Post procedural fever [Recovering/Resolving]
  - Post procedural inflammation [Recovering/Resolving]
  - Multiple organ dysfunction syndrome [Recovering/Resolving]

NARRATIVE: CASE EVENT DATE: 20240823
